FAERS Safety Report 11411186 (Version 2)
Quarter: 2015Q3

REPORT INFORMATION
  Report Type: Spontaneous
  Country: US (occurrence: US)
  Receive Date: 20150821
  Receipt Date: 20150903
  Transmission Date: 20151125
  Serious: No
  Sender: FDA-Public Use
  Company Number: US-ELI_LILLY_AND_COMPANY-US201004005800

PATIENT
  Sex: Female

DRUGS (4)
  1. HUMULIN N [Suspect]
     Active Substance: INSULIN HUMAN
     Indication: DIABETES MELLITUS
  2. HUMALOG [Suspect]
     Active Substance: INSULIN LISPRO
     Indication: DIABETES MELLITUS
  3. HUMULIN R [Suspect]
     Active Substance: INSULIN HUMAN
     Indication: DIABETES MELLITUS
  4. HUMULIN U [Suspect]
     Active Substance: INSULIN HUMAN
     Indication: DIABETES MELLITUS
     Dates: start: 1990

REACTIONS (7)
  - Hypersensitivity [Unknown]
  - Blood glucose increased [Unknown]
  - Blood glucose fluctuation [Unknown]
  - Drug ineffective [Unknown]
  - Pruritus generalised [Unknown]
  - Drug dispensing error [Unknown]
  - Headache [Unknown]

NARRATIVE: CASE EVENT DATE: 1990
